FAERS Safety Report 18158242 (Version 1)
Quarter: 2020Q3

REPORT INFORMATION
  Report Type: Spontaneous
  Country: US (occurrence: US)
  Receive Date: 20200817
  Receipt Date: 20200817
  Transmission Date: 20201103
  Serious: Yes (Other)
  Sender: FDA-Public Use
  Company Number: US-THERAPEUTICSMD-2020TMD03176

PATIENT
  Sex: Female
  Weight: 79.37 kg

DRUGS (8)
  1. INDERAL [Concomitant]
     Active Substance: PROPRANOLOL HYDROCHLORIDE
     Dosage: UP TO 40 MG
     Dates: start: 20200722
  2. BIJUVA [Suspect]
     Active Substance: ESTRADIOL\PROGESTERONE
     Indication: ATROPHIC VULVOVAGINITIS
     Dosage: 1/100 MG (1 CAPSULE), 1X/DAY
     Route: 048
     Dates: start: 202006
  3. INDERAL [Concomitant]
     Active Substance: PROPRANOLOL HYDROCHLORIDE
     Dosage: 10 MG, 2X/DAY
  4. JANUVIA [Concomitant]
     Active Substance: SITAGLIPTIN PHOSPHATE
  5. LOSARTAN. [Concomitant]
     Active Substance: LOSARTAN
     Dosage: 100 MG, 1X/DAY
     Dates: start: 20200722
  6. LOSARTAN. [Concomitant]
     Active Substance: LOSARTAN
     Dosage: 50 MG, 2X/DAY
  7. BIJUVA [Suspect]
     Active Substance: ESTRADIOL\PROGESTERONE
     Indication: VULVOVAGINAL BURNING SENSATION
  8. BIJUVA [Suspect]
     Active Substance: ESTRADIOL\PROGESTERONE
     Indication: VULVOVAGINAL DISCOMFORT

REACTIONS (2)
  - Drug ineffective for unapproved indication [Not Recovered/Not Resolved]
  - Hypertension [Not Recovered/Not Resolved]

NARRATIVE: CASE EVENT DATE: 202006
